FAERS Safety Report 18079270 (Version 1)
Quarter: 2020Q3

REPORT INFORMATION
  Report Type: Spontaneous
  Country: US (occurrence: US)
  Receive Date: 20200727
  Receipt Date: 20200727
  Transmission Date: 20201103
  Serious: Yes (Death)
  Sender: FDA-Public Use
  Company Number: None

PATIENT
  Age: 77 Year
  Sex: Female
  Weight: 75 kg

DRUGS (14)
  1. REMDESIVIR SOLUTION 100MG VIAL [Suspect]
     Active Substance: REMDESIVIR
     Indication: COVID-19 PNEUMONIA
     Dosage: FREQUENCY: ONCE
     Route: 042
     Dates: start: 20200710, end: 20200710
  2. ACETAMINOPHEN. [Concomitant]
     Active Substance: ACETAMINOPHEN
  3. NOREPINEPHRINE. [Concomitant]
     Active Substance: NOREPINEPHRINE
  4. VITAMIN D [Concomitant]
     Active Substance: VITAMIN D NOS
  5. DIPHENHYDRAMINE. [Concomitant]
     Active Substance: DIPHENHYDRAMINE
  6. REMDESIVIR SOLUTION 100MG VIAL [Suspect]
     Active Substance: REMDESIVIR
     Indication: COVID-19 PNEUMONIA
     Route: 042
     Dates: start: 20200711, end: 20200714
  7. DEXAMETHASONE. [Concomitant]
     Active Substance: DEXAMETHASONE
  8. ENOXAPARIN [Concomitant]
     Active Substance: ENOXAPARIN
  9. FUROSEMIDE. [Concomitant]
     Active Substance: FUROSEMIDE
  10. HYDROCORTISONE SODIUM SUCCINATE [Concomitant]
     Active Substance: HYDROCORTISONE SODIUM SUCCINATE
  11. ALPRAZOLAM. [Concomitant]
     Active Substance: ALPRAZOLAM
  12. MUPIROCIN. [Concomitant]
     Active Substance: MUPIROCIN
  13. MYCOPHENOLATE [Concomitant]
     Active Substance: MYCOPHENOLIC ACID
  14. DEXMEDETOMIDINE. [Concomitant]
     Active Substance: DEXMEDETOMIDINE

REACTIONS (7)
  - Lethargy [None]
  - Pulse absent [None]
  - Apnoeic attack [None]
  - Fatigue [None]
  - Brain death [None]
  - Confusional state [None]
  - Myasthenia gravis crisis [None]

NARRATIVE: CASE EVENT DATE: 20200722
